FAERS Safety Report 21618239 (Version 5)
Quarter: 2025Q3

REPORT INFORMATION
  Report Type: Report from Study
  Country: EU (occurrence: EU)
  Receive Date: 20221119
  Receipt Date: 20250919
  Transmission Date: 20251020
  Serious: Yes (Death, Life-Threatening, Hospitalization, Other)
  Sender: AUROBINDO
  Company Number: EU-RECORDATI-2020004997

PATIENT
  Age: 51 Year
  Sex: Female

DRUGS (8)
  1. DIAZEPAM [Suspect]
     Active Substance: DIAZEPAM
     Indication: Substance use
     Route: 065
  2. PREGABALIN [Suspect]
     Active Substance: PREGABALIN
     Indication: Substance use
     Route: 065
  3. QUETIAPINE [Suspect]
     Active Substance: QUETIAPINE
     Indication: Substance use
     Route: 065
  4. COCAINE [Suspect]
     Active Substance: COCAINE
     Indication: Substance use
     Route: 065
  5. CODEINE CAMPHORSULFONATE [Interacting]
     Active Substance: CODEINE CAMPHORSULFONATE
     Indication: Substance use
     Route: 065
  6. LYRICA [Interacting]
     Active Substance: PREGABALIN
     Indication: Product used for unknown indication
     Route: 065
  7. METHADONE HYDROCHLORIDE [Interacting]
     Active Substance: METHADONE HYDROCHLORIDE
     Indication: Substance use
     Route: 065
  8. MORPHINE [Suspect]
     Active Substance: MORPHINE
     Indication: Substance use
     Route: 065

REACTIONS (11)
  - Respiratory depression [Fatal]
  - Asphyxia [Fatal]
  - Cardiopulmonary failure [Fatal]
  - Intentional product misuse [Fatal]
  - Substance abuse [Fatal]
  - Visceral congestion [Fatal]
  - Drug abuse [Fatal]
  - Overdose [Fatal]
  - Poisoning [Fatal]
  - Drug interaction [Fatal]
  - Toxicity to various agents [Fatal]
